FAERS Safety Report 10359160 (Version 1)
Quarter: 2014Q3

REPORT INFORMATION
  Report Type: Spontaneous
  Country: US (occurrence: None)
  Receive Date: 20140731
  Receipt Date: 20140731
  Transmission Date: 20150326
  Serious: Yes (Other)
  Sender: FDA-Public Use
  Company Number: None

PATIENT
  Age: 50 Year
  Sex: Female
  Weight: 111.13 kg

DRUGS (1)
  1. VICTOZA [Suspect]
     Active Substance: LIRAGLUTIDE
     Indication: GLYCOSYLATED HAEMOGLOBIN INCREASED
     Dosage: 1.2 MG ONCE DAILY INJECTED IN STOMACH OR ARM
     Dates: start: 20140501, end: 20140714

REACTIONS (6)
  - Weight decreased [None]
  - Refusal of treatment by patient [None]
  - Diarrhoea [None]
  - Drug intolerance [None]
  - Nausea [None]
  - Abdominal pain upper [None]

NARRATIVE: CASE EVENT DATE: 20140723
